FAERS Safety Report 4995694-6 (Version None)
Quarter: 2006Q2

REPORT INFORMATION
  Report Type: 
  Country: None (occurrence: None)
  Receive Date: 20060508
  Receipt Date: 20060426
  Transmission Date: 20061013
  Serious: Yes (Other)
  Sender: FDA-Public Use
  Company Number: CH-BRISTOL-MYERS SQUIBB COMPANY-13365523

PATIENT
  Age: 31 Year
  Sex: Female

DRUGS (9)
  1. ENDOXAN [Suspect]
     Indication: SYSTEMIC LUPUS ERYTHEMATOSUS
     Dates: start: 20041201, end: 20050610
  2. ACTONEL [Concomitant]
     Dates: start: 20050415
  3. CALPEROS [Concomitant]
     Dates: start: 20050415
  4. CERAZETTE [Concomitant]
     Dates: start: 20050415, end: 20050616
  5. EUTHYROX [Concomitant]
     Dates: start: 20050415
  6. PANTOZOL [Concomitant]
     Dates: start: 20050415, end: 20050616
  7. PREDNISONE TAB [Concomitant]
     Dates: start: 20050415
  8. ZESTRIL [Concomitant]
     Dates: start: 20050415
  9. MAXALT [Concomitant]

REACTIONS (3)
  - CAESAREAN SECTION [None]
  - DRUG EXPOSURE DURING PREGNANCY [None]
  - PROTEINURIA [None]
